FAERS Safety Report 5036238-2 (Version None)
Quarter: 2006Q2

REPORT INFORMATION
  Report Type: 
  Country: None (occurrence: None)
  Receive Date: 20060531
  Receipt Date: 20060421
  Transmission Date: 20061013
  Serious: Yes (Other)
  Sender: FDA-Public Use
  Company Number: PHEH2006US05285

PATIENT
  Age: 7 Year
  Sex: Female
  Weight: 20 kg

DRUGS (2)
  1. EXJADE [Suspect]
     Indication: BLOOD IRON INCREASED
     Dosage: 500 MG, QD, ORAL
     Route: 048
     Dates: start: 20060323, end: 20060420
  2. FOLIC ACID [Concomitant]

REACTIONS (4)
  - ALANINE AMINOTRANSFERASE INCREASED [None]
  - ASPARTATE AMINOTRANSFERASE INCREASED [None]
  - HEPATITIS [None]
  - HEPATOTOXICITY [None]
